FAERS Safety Report 20356523 (Version 1)
Quarter: 2022Q1

REPORT INFORMATION
  Report Type: Spontaneous
  Country: US (occurrence: US)
  Receive Date: 20220120
  Receipt Date: 20220120
  Transmission Date: 20220423
  Serious: No
  Sender: FDA-Public Use
  Company Number: US-PFIZER INC-202101425960

PATIENT
  Age: 60 Year
  Sex: Female

DRUGS (1)
  1. IBRANCE [Suspect]
     Active Substance: PALBOCICLIB
     Dosage: 100 MG,UNK
     Dates: start: 20210909

REACTIONS (6)
  - Chest pain [Recovering/Resolving]
  - Dyspnoea [Recovering/Resolving]
  - Lip swelling [Recovering/Resolving]
  - Eye pain [Recovering/Resolving]
  - Eye swelling [Recovering/Resolving]
  - Photophobia [Recovering/Resolving]
